FAERS Safety Report 13976258 (Version 2)
Quarter: 2017Q4

REPORT INFORMATION
  Report Type: Spontaneous
  Country: US (occurrence: US)
  Receive Date: 20170915
  Receipt Date: 20171201
  Transmission Date: 20180321
  Serious: No
  Sender: FDA-Public Use
  Company Number: US-PFIZER INC-2017399122

PATIENT
  Age: 69 Year
  Sex: Female

DRUGS (14)
  1. KRILL OIL [Concomitant]
     Active Substance: DIETARY SUPPLEMENT
     Dosage: UNK
  2. FLONASE [Concomitant]
     Active Substance: FLUTICASONE PROPIONATE
     Dosage: UNK
  3. DOCETAXEL. [Suspect]
     Active Substance: DOCETAXEL
     Indication: CHEMOTHERAPY
     Dosage: 150 MG, EVERY 3 WEEKS (THREE CYCLES)
     Dates: start: 20110818, end: 20110929
  4. CYTOXAN [Concomitant]
     Active Substance: CYCLOPHOSPHAMIDE
     Indication: CHEMOTHERAPY
     Dosage: UNK
  5. CENTRUM [Concomitant]
     Active Substance: VITAMINS
     Dosage: UNK
  6. COQ10 [Concomitant]
     Active Substance: UBIDECARENONE
     Dosage: UNK
  7. DOCETAXEL. [Suspect]
     Active Substance: DOCETAXEL
     Indication: BREAST CANCER FEMALE
  8. OMEPRAZOLE. [Concomitant]
     Active Substance: OMEPRAZOLE
     Dosage: UNK
  9. CRANBERRY EXTRACT [Concomitant]
     Active Substance: CRANBERRY JUICE
     Dosage: UNK
  10. NAPROXEN. [Concomitant]
     Active Substance: NAPROXEN
     Dosage: UNK
  11. LORATADINE. [Concomitant]
     Active Substance: LORATADINE
     Dosage: UNK
  12. NEOSAR [Concomitant]
     Active Substance: CYCLOPHOSPHAMIDE
     Indication: CHEMOTHERAPY
     Dosage: UNK
  13. SESAME OIL [Concomitant]
     Active Substance: SESAME OIL
     Dosage: UNK
  14. ASPRIN [Concomitant]
     Active Substance: ASPIRIN
     Dosage: UNK, LOW DOSE

REACTIONS (5)
  - Alopecia [Not Recovered/Not Resolved]
  - Hair colour changes [Not Recovered/Not Resolved]
  - Madarosis [Not Recovered/Not Resolved]
  - Hair texture abnormal [Not Recovered/Not Resolved]
  - Hair disorder [Not Recovered/Not Resolved]

NARRATIVE: CASE EVENT DATE: 2011
